FAERS Safety Report 7505023-1 (Version None)
Quarter: 2011Q2

REPORT INFORMATION
  Report Type: 
  Country: None (occurrence: None)
  Receive Date: 20110526
  Receipt Date: 20110517
  Transmission Date: 20111010
  Serious: No
  Sender: FDA-Public Use
  Company Number: US-BIOGENIDEC-2011BI018676

PATIENT
  Sex: Female

DRUGS (4)
  1. TYSABRI [Suspect]
     Indication: MULTIPLE SCLEROSIS
     Route: 042
     Dates: start: 20080111
  2. TYSABRI [Suspect]
     Route: 042
     Dates: start: 20050207, end: 20050301
  3. ACETAMINOPHEN [Concomitant]
     Indication: PAIN IN EXTREMITY
  4. IBUPROFEN [Concomitant]
     Indication: PAIN IN EXTREMITY

REACTIONS (9)
  - MUSCLE SPASTICITY [None]
  - HYPOAESTHESIA [None]
  - POOR VENOUS ACCESS [None]
  - FATIGUE [None]
  - COGNITIVE DISORDER [None]
  - MUSCULAR WEAKNESS [None]
  - MEMORY IMPAIRMENT [None]
  - UPPER RESPIRATORY TRACT INFECTION [None]
  - MULTIPLE SCLEROSIS RELAPSE [None]
